FAERS Safety Report 25956327 (Version 1)
Quarter: 2025Q4

REPORT INFORMATION
  Report Type: Spontaneous
  Country: EU (occurrence: EU)
  Receive Date: 20251024
  Receipt Date: 20251024
  Transmission Date: 20260117
  Serious: Yes (Hospitalization, Other)
  Sender: ACCORD
  Company Number: EU-Accord-509649

PATIENT
  Age: 53 Year

DRUGS (4)
  1. METHOTREXATE [Suspect]
     Active Substance: METHOTREXATE
     Indication: Raynaud^s phenomenon
  2. BOSENTAN [Concomitant]
     Active Substance: BOSENTAN
     Indication: Polymyositis
  3. BOSENTAN [Concomitant]
     Active Substance: BOSENTAN
     Indication: Raynaud^s phenomenon
  4. METHOTREXATE [Suspect]
     Active Substance: METHOTREXATE
     Indication: Polymyositis

REACTIONS (3)
  - Progressive multifocal leukoencephalopathy [Recovering/Resolving]
  - JC virus infection [Recovered/Resolved]
  - Off label use [Unknown]
